FAERS Safety Report 16715606 (Version 1)
Quarter: 2019Q3

REPORT INFORMATION
  Report Type: Spontaneous
  Country: US (occurrence: US)
  Receive Date: 20190819
  Receipt Date: 20190819
  Transmission Date: 20191005
  Serious: No
  Sender: FDA-Public Use
  Company Number: US-KVK-TECH, INC-2073313

PATIENT
  Sex: Female

DRUGS (1)
  1. PHENTERMINE HYDROCHLORIDE. [Suspect]
     Active Substance: PHENTERMINE HYDROCHLORIDE
     Indication: WEIGHT CONTROL
     Route: 048
     Dates: start: 20190801, end: 20190803

REACTIONS (7)
  - Product residue present [Recovered/Resolved]
  - Product physical issue [Recovered/Resolved]
  - Product colour issue [Recovered/Resolved]
  - Feeling abnormal [Recovered/Resolved]
  - Muscle tightness [Recovered/Resolved]
  - Insomnia [Recovered/Resolved]
  - Drug ineffective [Recovered/Resolved]

NARRATIVE: CASE EVENT DATE: 20190801
